FAERS Safety Report 6930282-3 (Version None)
Quarter: 2010Q3

REPORT INFORMATION
  Report Type: 
  Country: None (occurrence: None)
  Receive Date: 20100818
  Receipt Date: 20100728
  Transmission Date: 20110219
  Serious: Yes (Other)
  Sender: FDA-Public Use
  Company Number: 7012711

PATIENT
  Age: 28 Year
  Sex: Female

DRUGS (4)
  1. REBIF [Suspect]
     Indication: RELAPSING-REMITTING MULTIPLE SCLEROSIS
     Dosage: 44 MCG, 3 IN 1 WK, SUBCUTANEOUS
     Route: 058
     Dates: start: 20080901
  2. TOPIRAMATE [Concomitant]
  3. METOPROLOL SUCCINATE [Concomitant]
  4. VERTIX (FLUNARIZINE DIHYDROCHLORIDE) [Concomitant]

REACTIONS (4)
  - EYE DISORDER [None]
  - HEAD INJURY [None]
  - HEADACHE [None]
  - SYNCOPE [None]
